FAERS Safety Report 5443157-6 (Version None)
Quarter: 2007Q3

REPORT INFORMATION
  Report Type: 
  Country: None (occurrence: None)
  Receive Date: 20070730
  Receipt Date: 20070103
  Transmission Date: 20080115
  Serious: Yes (Other)
  Sender: FDA-Public Use
  Company Number: 233593

PATIENT
  Age: 55 Year
  Sex: Female

DRUGS (9)
  1. RITUXAN [Suspect]
     Indication: RHEUMATOID ARTHRITIS
     Dates: start: 20060606
  2. PROCARDIA [Concomitant]
  3. ARAVA [Concomitant]
  4. METHOTREXATE [Concomitant]
  5. FOLIC ACID [Concomitant]
  6. HAWTHORN BERRIES (CRATEGUS) [Concomitant]
  7. SUPER LYSINE (LYSINE) [Concomitant]
  8. ENALAPRIL MALEATE [Concomitant]
  9. IBUPROFEN [Concomitant]

REACTIONS (1)
  - URINARY TRACT INFECTION [None]
